FAERS Safety Report 9855296 (Version 1)
Quarter: 2014Q1

REPORT INFORMATION
  Report Type: Spontaneous
  Country: US (occurrence: US)
  Receive Date: 20140130
  Receipt Date: 20140130
  Transmission Date: 20141002
  Serious: Yes (Other)
  Sender: FDA-Public Use
  Company Number: US-ASTRAZENECA-2014SE05215

PATIENT
  Age: 29144 Day
  Sex: Female
  Weight: 65.3 kg

DRUGS (13)
  1. SYMBICORT [Suspect]
     Indication: CHRONIC OBSTRUCTIVE PULMONARY DISEASE
     Dosage: 160/4.5, 2 PUFFS BID
     Route: 055
     Dates: start: 200904
  2. OMEPRAZOLE [Suspect]
     Indication: ABDOMINAL DISCOMFORT
     Route: 048
     Dates: start: 2011
  3. CRESTOR [Suspect]
     Indication: BLOOD CHOLESTEROL ABNORMAL
     Route: 048
     Dates: start: 2011
  4. LABETOLOL [Concomitant]
     Indication: HYPERTENSION
  5. CLONIDINE [Concomitant]
     Indication: HYPERTENSION
  6. CITALOPRAM [Concomitant]
     Indication: ANXIETY
  7. SPIRONOLACTONE [Concomitant]
  8. FENOFIBRATE [Concomitant]
  9. ASPIRIN [Concomitant]
     Indication: CARDIAC DISORDER
  10. SENIOR VITAMIN PLUS [Concomitant]
     Indication: VITAMIN SUPPLEMENTATION
  11. VITAMIN D3 [Concomitant]
     Indication: HYPOVITAMINOSIS
  12. LORAZEPAM [Concomitant]
     Indication: ANXIETY
  13. VITAMIN B12 [Concomitant]
     Indication: HYPOVITAMINOSIS

REACTIONS (4)
  - Cataract [Unknown]
  - Visual acuity reduced [Unknown]
  - Device misuse [Unknown]
  - Circumstance or information capable of leading to medication error [Unknown]
